FAERS Safety Report 15242333 (Version 1)
Quarter: 2018Q3

REPORT INFORMATION
  Report Type: Report from Study
  Country: FR (occurrence: FR)
  Receive Date: 20180806
  Receipt Date: 20180806
  Transmission Date: 20181010
  Serious: Yes (Other)
  Sender: FDA-Public Use
  Company Number: FR-TEVA-2018-FR-938457

PATIENT
  Age: 24 Year
  Sex: Female

DRUGS (8)
  1. INFLIXIMAB [Suspect]
     Active Substance: INFLIXIMAB
     Indication: COLITIS ULCERATIVE
     Route: 065
  2. ADALIMUMAB [Suspect]
     Active Substance: ADALIMUMAB
     Indication: COLITIS ULCERATIVE
     Route: 065
  3. TACROLIMUS. [Suspect]
     Active Substance: TACROLIMUS
     Indication: COLITIS ULCERATIVE
     Dosage: 10 MILLIGRAM DAILY; INITIAL DOSE NOT STATED, AT THE TIME OF INITIATION OF ANTI?TNF?THERAPY, ADMINIST
     Route: 065
  4. ADALIMUMAB [Suspect]
     Active Substance: ADALIMUMAB
     Indication: COLITIS ULCERATIVE
     Dosage: DOSE CONTINUED FOR THE REST OF THE PERIOD
     Route: 065
  5. ADALIMUMAB [Suspect]
     Active Substance: ADALIMUMAB
     Indication: COLITIS ULCERATIVE
     Route: 065
  6. MYCOPHENOLATE MOFETIL. [Suspect]
     Active Substance: MYCOPHENOLATE MOFETIL
     Indication: COLITIS ULCERATIVE
     Route: 065
  7. INFLIXIMAB [Suspect]
     Active Substance: INFLIXIMAB
     Indication: COLITIS ULCERATIVE
     Dosage: 5 MG/KG AT WEEKS 0, 2, 6 AND AT WEEK 8
     Route: 065
  8. 5?AMINO SALICYLIC ACID [Concomitant]
     Indication: COLITIS ULCERATIVE
     Route: 065

REACTIONS (1)
  - Clostridium difficile infection [Unknown]
